FAERS Safety Report 11165851 (Version 1)
Quarter: 2015Q2

REPORT INFORMATION
  Report Type: Spontaneous
  Country: US (occurrence: US)
  Receive Date: 20150604
  Receipt Date: 20150604
  Transmission Date: 20150821
  Serious: No
  Sender: FDA-Public Use
  Company Number: US-GLAXOSMITHKLINE-US2015073998

PATIENT
  Sex: Male

DRUGS (4)
  1. XANAX [Concomitant]
     Active Substance: ALPRAZOLAM
  2. ANORO ELLIPTA [Suspect]
     Active Substance: UMECLIDINIUM BROMIDE\VILANTEROL TRIFENATATE
     Indication: CHRONIC OBSTRUCTIVE PULMONARY DISEASE
     Dosage: 1 PUFF(S), QD
     Route: 055
     Dates: start: 201505
  3. TEMAZEPAM. [Concomitant]
     Active Substance: TEMAZEPAM
  4. ALLOPURINOL. [Concomitant]
     Active Substance: ALLOPURINOL

REACTIONS (3)
  - Joint swelling [Unknown]
  - Peripheral swelling [Unknown]
  - Local swelling [Unknown]

NARRATIVE: CASE EVENT DATE: 2015
